FAERS Safety Report 12746276 (Version 1)
Quarter: 2016Q3

REPORT INFORMATION
  Report Type: Spontaneous
  Country: BR (occurrence: BR)
  Receive Date: 20160915
  Receipt Date: 20160915
  Transmission Date: 20161109
  Serious: Yes (Other)
  Sender: FDA-Public Use
  Company Number: BR-JNJFOC-20160912644

PATIENT
  Age: 23 Year

DRUGS (4)
  1. FENTANYL. [Suspect]
     Active Substance: FENTANYL
     Indication: PRODUCT USED FOR UNKNOWN INDICATION
     Route: 065
  2. ECSTASY [Suspect]
     Active Substance: METHYLENEDIOXYMETHAMPHETAMINE
     Indication: INTENTIONAL PRODUCT MISUSE
     Route: 065
  3. ALCOHOL. [Suspect]
     Active Substance: ALCOHOL
     Indication: ALCOHOL ABUSE
     Route: 065
  4. LSD [Suspect]
     Active Substance: LYSERGIDE
     Indication: INTENTIONAL PRODUCT MISUSE
     Route: 065

REACTIONS (1)
  - Cardio-respiratory arrest [Unknown]
